FAERS Safety Report 7321509-7 (Version None)
Quarter: 2011Q1

REPORT INFORMATION
  Report Type: 
  Country: None (occurrence: None)
  Receive Date: 20110228
  Receipt Date: 20110218
  Transmission Date: 20110831
  Serious: Yes (Hospitalization)
  Sender: FDA-Public Use
  Company Number: US-ASTRAZENECA-2010SE55852

PATIENT
  Sex: Female

DRUGS (2)
  1. STEROIDS [Suspect]
     Route: 065
  2. CRESTOR [Suspect]
     Route: 048

REACTIONS (4)
  - MALAISE [None]
  - BLOOD GLUCOSE INCREASED [None]
  - THROMBOSIS [None]
  - PNEUMONIA [None]
